FAERS Safety Report 9502820 (Version 2)
Quarter: 2013Q3

REPORT INFORMATION
  Report Type: Spontaneous
  Country: GB (occurrence: GB)
  Receive Date: 20130906
  Receipt Date: 20130906
  Transmission Date: 20140515
  Serious: Yes (Hospitalization, Congenital Anomaly)
  Sender: FDA-Public Use
  Company Number: GB-JNJFOC-JAUK29743

PATIENT
  Sex: 0

DRUGS (2)
  1. VERMOX [Suspect]
     Indication: ENTEROBIASIS
     Route: 064
     Dates: start: 19960410, end: 19960410
  2. SUMATRIPTAN [Concomitant]
     Indication: MIGRAINE

REACTIONS (2)
  - Trisomy 21 [Not Recovered/Not Resolved]
  - Foetal exposure during pregnancy [Recovered/Resolved]
